FAERS Safety Report 9415453 (Version 5)
Quarter: 2014Q2

REPORT INFORMATION
  Report Type: Spontaneous
  Country: US (occurrence: US)
  Receive Date: 20130723
  Receipt Date: 20140611
  Transmission Date: 20141212
  Serious: Yes (Other)
  Sender: FDA-Public Use
  Company Number: US-PFIZER INC-2013212919

PATIENT
  Age: 54 Year
  Sex: Female

DRUGS (8)
  1. LIPITOR [Suspect]
     Indication: LOW DENSITY LIPOPROTEIN INCREASED
     Dosage: 20 MG, 1X/DAY (ONE TABLET AT BED TIME)
     Route: 048
     Dates: start: 20010202, end: 20050421
  2. LIPITOR [Suspect]
     Indication: CARDIOVASCULAR EVENT PROPHYLAXIS
     Dosage: 40 MG, 1X/DAY (ONE TABLET AS DIRECTED)
     Route: 048
     Dates: start: 20051014
  3. LANOXIN [Concomitant]
     Dosage: 0.25 MG, 1X/DAY
     Dates: start: 20050307
  4. INDERAL [Concomitant]
     Dosage: 10 MG, EVERY 4 HRS (SIX TIMES A DAY AS NEEDED)
     Dates: start: 20050307
  5. XANAX [Concomitant]
     Dosage: 1 MG, 3X/DAY AS NEEDED
     Dates: start: 20050307
  6. FIORICET [Concomitant]
     Dosage: 1 DF, 4X/DAY (AS NEEDED)
     Dates: start: 20050307
  7. PREMARIN [Concomitant]
     Dosage: 1.25 MG, 1X/DAY
     Dates: start: 20050307
  8. FLEXERIL [Concomitant]
     Dosage: 10 MG, 1X/DAY (AT NIGHT AS NEEDED)
     Dates: start: 20050307

REACTIONS (1)
  - Type 2 diabetes mellitus [Not Recovered/Not Resolved]
